FAERS Safety Report 22153799 (Version 1)
Quarter: 2023Q1

REPORT INFORMATION
  Report Type: Spontaneous
  Country: US (occurrence: US)
  Receive Date: 20230330
  Receipt Date: 20230330
  Transmission Date: 20230418
  Serious: Yes (Hospitalization)
  Sender: FDA-Public Use
  Company Number: US-CADILA HEALTHCARE LIMITED-US-ZYDUS-089860

PATIENT

DRUGS (1)
  1. HALOPERIDOL [Suspect]
     Active Substance: HALOPERIDOL
     Indication: Alcohol poisoning
     Dosage: 5 MILLIGRAM
     Route: 030

REACTIONS (2)
  - Atrioventricular block [Recovering/Resolving]
  - Unmasking of previously unidentified disease [Recovering/Resolving]
